FAERS Safety Report 13564648 (Version 2)
Quarter: 2017Q2

REPORT INFORMATION
  Report Type: Report from Study
  Country: CN (occurrence: CN)
  Receive Date: 20170519
  Receipt Date: 20170524
  Transmission Date: 20170830
  Serious: Yes (Death, Other)
  Sender: FDA-Public Use
  Company Number: CN-JNJFOC-20170516905

PATIENT

DRUGS (3)
  1. INFLIXIMAB, RECOMBINANT [Suspect]
     Active Substance: INFLIXIMAB
     Indication: DERMATOMYOSITIS
     Route: 042
  2. INFLIXIMAB, RECOMBINANT [Suspect]
     Active Substance: INFLIXIMAB
     Indication: INTERSTITIAL LUNG DISEASE
     Route: 042
  3. INFLIXIMAB, RECOMBINANT [Suspect]
     Active Substance: INFLIXIMAB
     Indication: POLYMYOSITIS
     Route: 042

REACTIONS (6)
  - Off label use [Unknown]
  - Transfusion reaction [Unknown]
  - Infection [Unknown]
  - Respiratory failure [Fatal]
  - Osteoporosis [Unknown]
  - Product use in unapproved indication [Unknown]
